FAERS Safety Report 6430449-7 (Version None)
Quarter: 2009Q4

REPORT INFORMATION
  Report Type: 
  Country: None (occurrence: None)
  Receive Date: 20091106
  Receipt Date: 20091007
  Transmission Date: 20100525
  Serious: Yes (Other)
  Sender: FDA-Public Use
  Company Number: PHHY2009BR43813

PATIENT
  Sex: Female

DRUGS (2)
  1. FORASEQ [Suspect]
     Indication: ASTHMA
  2. DIOVAN [Suspect]
     Indication: HYPERTENSION

REACTIONS (2)
  - DEPRESSION [None]
  - LIVER DISORDER [None]
